FAERS Safety Report 18497742 (Version 1)
Quarter: 2020Q4

REPORT INFORMATION
  Report Type: Spontaneous
  Country: FR (occurrence: FR)
  Receive Date: 20201112
  Receipt Date: 20201112
  Transmission Date: 20210114
  Serious: Yes (Death, Other)
  Sender: FDA-Public Use
  Company Number: FR-DENTSPLY-2020SCDP000364

PATIENT
  Age: 33 Year
  Sex: Male

DRUGS (1)
  1. ISOPROPYL ALCOHOL. [Suspect]
     Active Substance: ISOPROPYL ALCOHOL
     Indication: PRODUCT USED FOR UNKNOWN INDICATION
     Dosage: UNK

REACTIONS (1)
  - Alcohol poisoning [Fatal]
